FAERS Safety Report 5280514-5 (Version None)
Quarter: 2007Q1

REPORT INFORMATION
  Report Type: 
  Country: None (occurrence: None)
  Receive Date: 20070329
  Receipt Date: 20070321
  Transmission Date: 20070707
  Serious: Yes (Hospitalization, Other)
  Sender: FDA-Public Use
  Company Number: FR-JNJFOC-20070105546

PATIENT
  Age: 46 Year
  Sex: Female
  Weight: 53 kg

DRUGS (9)
  1. CAELYX [Suspect]
     Indication: BREAST CANCER METASTATIC
     Route: 042
  2. ALPRAZOLAM [Concomitant]
     Indication: ANXIETY
     Route: 065
  3. TAMOXIFEN CITRATE [Concomitant]
     Indication: BREAST CANCER
     Route: 065
  4. GRANISETRON [Concomitant]
     Indication: ANTIEMETIC SUPPORTIVE CARE
     Route: 042
  5. ZOLEDRONIC ACID [Concomitant]
     Indication: METASTASES TO BONE
     Route: 042
  6. DOCETAXEL [Concomitant]
     Indication: BREAST CANCER
     Route: 042
  7. PREDNISOLONE [Concomitant]
     Indication: ANTIEMETIC SUPPORTIVE CARE
     Route: 048
  8. METHYLPREDNISOLONE 16MG TAB [Concomitant]
     Indication: ANTIEMETIC SUPPORTIVE CARE
     Route: 048
  9. DURAGESIC-100 [Concomitant]
     Indication: ANALGESIC EFFECT
     Route: 003

REACTIONS (4)
  - DYSPNOEA [None]
  - GENERALISED ERYTHEMA [None]
  - INFUSION RELATED REACTION [None]
  - MALAISE [None]
